FAERS Safety Report 11395072 (Version 2)
Quarter: 2015Q4

REPORT INFORMATION
  Report Type: Spontaneous
  Country: GB (occurrence: GB)
  Receive Date: 20150819
  Receipt Date: 20151022
  Transmission Date: 20160304
  Serious: Yes (Hospitalization)
  Sender: FDA-Public Use
  Company Number: GB-PFIZER INC-2015268730

PATIENT
  Age: 4 Year
  Sex: Male

DRUGS (2)
  1. IBUPROFEN. [Suspect]
     Active Substance: IBUPROFEN
     Dosage: 10 MG/KG, UNK
  2. PARACETAMOL [Suspect]
     Active Substance: ACETAMINOPHEN
     Dosage: 10 MG/KG, UNK

REACTIONS (5)
  - Cough [Unknown]
  - Wheezing [Unknown]
  - Rhinitis [Unknown]
  - Periorbital oedema [Unknown]
  - Lip swelling [Unknown]

NARRATIVE: CASE EVENT DATE: 20150609
